FAERS Safety Report 8254964-9 (Version None)
Quarter: 2012Q2

REPORT INFORMATION
  Report Type: 
  Country: None (occurrence: None)
  Receive Date: 20120403
  Receipt Date: 20120329
  Transmission Date: 20120825
  Serious: Yes (Death)
  Sender: FDA-Public Use
  Company Number: US-PFIZER INC-2012080477

PATIENT
  Sex: Male

DRUGS (1)
  1. SUTENT [Suspect]
     Indication: MALIGNANT SOFT TISSUE NEOPLASM
     Dosage: (3) 12.5MG TABLETS DAILY

REACTIONS (2)
  - DISEASE PROGRESSION [None]
  - MALIGNANT SOFT TISSUE NEOPLASM [None]
